FAERS Safety Report 6535634-1 (Version None)
Quarter: 2010Q1

REPORT INFORMATION
  Report Type: 
  Country: None (occurrence: None)
  Receive Date: 20100113
  Receipt Date: 20100110
  Transmission Date: 20100710
  Serious: Yes (Other)
  Sender: FDA-Public Use
  Company Number: IT-BAYER-200941008GPV

PATIENT
  Age: 42 Year
  Sex: Male

DRUGS (1)
  1. CIPROXIN [Suspect]
     Indication: TOOTH ABSCESS
     Dosage: TOTAL DAILY DOSE: 0.5 DF
     Dates: start: 20080408, end: 20080408

REACTIONS (2)
  - HALLUCINATION, VISUAL [None]
  - SCINTILLATING SCOTOMA [None]
